FAERS Safety Report 19079116 (Version 1)
Quarter: 2021Q1

REPORT INFORMATION
  Report Type: Spontaneous
  Country: FR (occurrence: FR)
  Receive Date: 20210331
  Receipt Date: 20210331
  Transmission Date: 20210420
  Serious: Yes (Hospitalization)
  Sender: FDA-Public Use
  Company Number: FR-TEVA-2021-FR-1895971

PATIENT
  Age: 32 Year
  Sex: Male

DRUGS (1)
  1. TRAMADOL (CHLORHYDRATE DE) [Suspect]
     Active Substance: TRAMADOL HYDROCHLORIDE
     Route: 048
     Dates: start: 2018, end: 20180924

REACTIONS (7)
  - Constipation [Unknown]
  - Disturbance in attention [Unknown]
  - Intentional product misuse [Recovered/Resolved]
  - Insomnia [Unknown]
  - Pruritus [Unknown]
  - Dysuria [Unknown]
  - Withdrawal syndrome [Recovered/Resolved]

NARRATIVE: CASE EVENT DATE: 2018
